FAERS Safety Report 12633852 (Version 7)
Quarter: 2017Q1

REPORT INFORMATION
  Report Type: Report from Study
  Country: US (occurrence: US)
  Receive Date: 20160808
  Receipt Date: 20170329
  Transmission Date: 20170428
  Serious: Yes (Hospitalization, Other)
  Sender: FDA-Public Use
  Company Number: US-BAYER-2016-058562

PATIENT
  Age: 61 Year
  Sex: Male
  Weight: 99.77 kg

DRUGS (12)
  1. ADEMPAS [Suspect]
     Active Substance: RIOCIGUAT
     Indication: PULMONARY ARTERIAL HYPERTENSION
     Dosage: 2.5 MG, TID
     Route: 048
  2. ADEMPAS [Suspect]
     Active Substance: RIOCIGUAT
     Indication: PULMONARY ARTERIAL HYPERTENSION
     Dosage: 2.5 MG, TID
     Route: 048
  3. REMODULIN [Suspect]
     Active Substance: TREPROSTINIL
     Dosage: UNK
     Route: 042
  4. ADEMPAS [Suspect]
     Active Substance: RIOCIGUAT
     Indication: PULMONARY ARTERIAL HYPERTENSION
     Dosage: 2.5 MG, TID
     Route: 048
  5. REMODULIN [Suspect]
     Active Substance: TREPROSTINIL
     Dosage: UNK
     Route: 058
  6. ADEMPAS [Suspect]
     Active Substance: RIOCIGUAT
     Indication: PULMONARY ARTERIAL HYPERTENSION
     Dosage: UNK
     Route: 048
     Dates: start: 20140925
  7. ADEMPAS [Suspect]
     Active Substance: RIOCIGUAT
     Indication: PULMONARY ARTERIAL HYPERTENSION
     Dosage: UNK
  8. ADEMPAS [Suspect]
     Active Substance: RIOCIGUAT
     Indication: PULMONARY ARTERIAL HYPERTENSION
     Dosage: 2.5 MG, TID
     Route: 048
  9. ADEMPAS [Suspect]
     Active Substance: RIOCIGUAT
     Indication: PULMONARY ARTERIAL HYPERTENSION
     Dosage: 0.5 MG, TID
     Route: 048
     Dates: start: 201702
  10. LETAIRIS [Concomitant]
     Active Substance: AMBRISENTAN
     Dosage: UNK
  11. ADEMPAS [Suspect]
     Active Substance: RIOCIGUAT
     Indication: PULMONARY ARTERIAL HYPERTENSION
     Dosage: 2.5 MG, TID
     Route: 048
  12. ADEMPAS [Suspect]
     Active Substance: RIOCIGUAT
     Indication: PULMONARY ARTERIAL HYPERTENSION
     Dosage: 0.5 MG, TID
     Route: 048

REACTIONS (23)
  - Oxygen saturation decreased [Unknown]
  - Blood glucose decreased [Unknown]
  - Myocardial infarction [Recovering/Resolving]
  - Headache [None]
  - Device related infection [None]
  - Cardiac arrest [Unknown]
  - Hospitalisation [Unknown]
  - Infusion site erythema [Unknown]
  - Infusion site swelling [None]
  - Fluid retention [Unknown]
  - Device breakage [None]
  - Fall [None]
  - Infusion site pain [Unknown]
  - Fluid overload [Unknown]
  - Dizziness [None]
  - Cardiac failure [Unknown]
  - Infusion site haemorrhage [None]
  - Atrial fibrillation [Unknown]
  - Cerebrovascular accident [Recovering/Resolving]
  - Decreased appetite [None]
  - Device leakage [None]
  - Sepsis [None]
  - Pneumonia [Unknown]

NARRATIVE: CASE EVENT DATE: 2017
